FAERS Safety Report 17085999 (Version 1)
Quarter: 2019Q4

REPORT INFORMATION
  Report Type: Spontaneous
  Country: US (occurrence: US)
  Receive Date: 20191127
  Receipt Date: 20191127
  Transmission Date: 20200122
  Serious: Yes (Life-Threatening)
  Sender: FDA-Public Use
  Company Number: None

PATIENT
  Age: 34 Year
  Sex: Male
  Weight: 54.45 kg

DRUGS (5)
  1. ASPIRIN. [Concomitant]
     Active Substance: ASPIRIN
  2. LOSARTAN POTASSIUM. [Suspect]
     Active Substance: LOSARTAN POTASSIUM
     Indication: HYPERTENSION
     Dosage: ?          QUANTITY:1 TABLET(S);?
     Route: 048
  3. FISH OIL [Concomitant]
     Active Substance: FISH OIL
  4. ACETAMINOPHEN. [Concomitant]
     Active Substance: ACETAMINOPHEN
  5. MULTI VITAMIN [Concomitant]
     Active Substance: VITAMINS

REACTIONS (9)
  - Hyperhidrosis [None]
  - Nervousness [None]
  - Product quality issue [None]
  - Post-traumatic stress disorder [None]
  - Dizziness [None]
  - Organ failure [None]
  - Headache [None]
  - Anxiety [None]
  - Blood pressure increased [None]

NARRATIVE: CASE EVENT DATE: 20191122
